FAERS Safety Report 5121461-9 (Version None)
Quarter: 2006Q4

REPORT INFORMATION
  Report Type: 
  Country: None (occurrence: None)
  Receive Date: 20061006
  Receipt Date: 20060731
  Transmission Date: 20070319
  Serious: Yes (Hospitalization)
  Sender: FDA-Public Use
  Company Number: FR-SANOFI-SYNTHELABO-A02200601950

PATIENT
  Age: 74 Year
  Sex: Male

DRUGS (7)
  1. SIMVASTATIN [Concomitant]
     Indication: LIPID METABOLISM DISORDER
     Route: 048
     Dates: start: 20051203
  2. ZOLPIDEM TARTRATE [Suspect]
     Indication: DRUG USE FOR UNKNOWN INDICATION
     Route: 048
     Dates: start: 20060505, end: 20060505
  3. CELEBREX [Suspect]
     Indication: PARAESTHESIA
     Route: 048
     Dates: start: 20060503, end: 20060506
  4. DOLIPRANE [Concomitant]
     Indication: DRUG USE FOR UNKNOWN INDICATION
     Dosage: 3 G
     Route: 048
     Dates: start: 20060503
  5. PANTOPRAZOLE SODIUM [Suspect]
     Indication: DRUG USE FOR UNKNOWN INDICATION
     Route: 048
     Dates: start: 20060503, end: 20060506
  6. ALTIM [Suspect]
     Indication: PARAESTHESIA
     Dosage: UNK
     Route: 014
     Dates: start: 20060502, end: 20060502
  7. JOSIR [Concomitant]
     Indication: DRUG USE FOR UNKNOWN INDICATION
     Route: 048
     Dates: start: 20051203

REACTIONS (4)
  - ERYTHEMA MULTIFORME [None]
  - NODULE [None]
  - PYREXIA [None]
  - RASH [None]
